FAERS Safety Report 10699722 (Version 1)
Quarter: 2015Q1

REPORT INFORMATION
  Report Type: Spontaneous
  Country: JP (occurrence: JP)
  Receive Date: 20150109
  Receipt Date: 20150109
  Transmission Date: 20150721
  Serious: Yes (Death)
  Sender: FDA-Public Use
  Company Number: JP-CIPLA LTD.-2015JP00275

PATIENT

DRUGS (2)
  1. ETOPOSIDE. [Suspect]
     Active Substance: ETOPOSIDE
     Indication: OVARIAN CANCER
     Dosage: 50 MG/M2 ONCE A DAY, FROM DAY 1 TO DAY 21
     Route: 048
  2. IRINOTECAN [Suspect]
     Active Substance: IRINOTECAN
     Indication: OVARIAN CANCER
     Dosage: 70 MG/M2 ON DAYS 1 AND 15
     Route: 042

REACTIONS (2)
  - Disseminated intravascular coagulation [Fatal]
  - Infection [Fatal]
